FAERS Safety Report 7365993-1 (Version None)
Quarter: 2011Q1

REPORT INFORMATION
  Report Type: 
  Country: None (occurrence: None)
  Receive Date: 20110317
  Receipt Date: 20110317
  Transmission Date: 20110831
  Serious: Yes (Disabling)
  Sender: FDA-Public Use
  Company Number: None

PATIENT
  Sex: Female
  Weight: 57.6068 kg

DRUGS (2)
  1. CIPROFLOXACIN HCL 500 MG TAB [Suspect]
     Indication: RASH
     Dosage: 500 MG TAB 1 TABLET 2X A DAY ORAL
     Route: 048
     Dates: start: 20101206
  2. CIPROFLOXACIN HCL 500 MG TAB [Suspect]
     Indication: STAPHYLOCOCCAL INFECTION
     Dosage: 500 MG TAB 1 TABLET 2X A DAY ORAL
     Route: 048
     Dates: start: 20100915

REACTIONS (3)
  - TENDON RUPTURE [None]
  - MUSCULOSKELETAL PAIN [None]
  - MYALGIA [None]
